FAERS Safety Report 9174419 (Version 2)
Quarter: 2013Q1

REPORT INFORMATION
  Report Type: Spontaneous
  Country: GB (occurrence: None)
  Receive Date: 20130313
  Receipt Date: 20130318
  Transmission Date: 20140127
  Serious: Yes (Other)
  Sender: FDA-Public Use
  Company Number: AUR-APL-2013-02101

PATIENT
  Sex: Female

DRUGS (15)
  1. CITALOPRAM [Suspect]
     Indication: BIPOLAR DISORDER
     Route: 048
     Dates: start: 200703
  2. ZOPICLONE [Suspect]
     Indication: BIPOLAR DISORDER
     Route: 048
     Dates: start: 200703
  3. DIAZEPAM (DIAZEPAM) [Concomitant]
  4. DOSULEPIN (DOSULEPIN) [Concomitant]
  5. DULOXETINE [Concomitant]
  6. ESCITALOPRAM (ESCITALOPRAM) [Concomitant]
  7. FLUOXETINE (FLUOXETINE) [Concomitant]
  8. LITHIUM (LITHIUM) UNKNOWN [Concomitant]
  9. LITHIUM CARBONATE (LITHIUM CARBONATE) [Concomitant]
  10. OLANZAPINE (OLANZAPINE) [Concomitant]
  11. PHENELZINE (PHENELZINE) [Concomitant]
  12. QUETIAPINE (QUETIAPINE) (QUETIAPINE) [Concomitant]
  13. SEMISODIUM VALPROATE (VALPROATE SEMISODIUM) [Concomitant]
  14. TRIHEXYPHENIDYL (TRIHEXYPHENIDYL) [Concomitant]
  15. ZUCLOPENTHIXOL DECANOATE (ZUCLPENTHIXOL DECANOATE) [Concomitant]

REACTIONS (11)
  - Disorientation [None]
  - Unevaluable event [None]
  - Amnesia [None]
  - Malaise [None]
  - Weight increased [None]
  - Hyperphagia [None]
  - Polydipsia [None]
  - Activities of daily living impaired [None]
  - Pollakiuria [None]
  - Frequent bowel movements [None]
  - Hypersomnia [None]
